FAERS Safety Report 7571763-1 (Version None)
Quarter: 2011Q2

REPORT INFORMATION
  Report Type: 
  Country: None (occurrence: None)
  Receive Date: 20110624
  Receipt Date: 20110615
  Transmission Date: 20111010
  Serious: Yes (Hospitalization, Other)
  Sender: FDA-Public Use
  Company Number: US-ASTRAZENECA-2010SE20644

PATIENT
  Age: 56 Year
  Sex: Male

DRUGS (19)
  1. CRESTOR [Suspect]
     Dosage: TOTAL DAILY DOSE 20 MGS
     Route: 048
  2. OMEPRAZOLE [Concomitant]
     Route: 048
  3. FAMOTIDINE [Concomitant]
     Route: 048
  4. AMLODIPINE BESYLATE [Concomitant]
     Route: 048
  5. FUROSEMIDE [Concomitant]
     Route: 048
  6. EQUATE NITE TIME [Concomitant]
     Dosage: ONE TABLESPOONFUL AT BEDTIME
     Route: 048
  7. MAALOX MAX [Concomitant]
     Dosage: ONE-TWO TABLETS AS NEEDED
     Route: 048
  8. COZAAR [Concomitant]
     Route: 048
  9. CHOLESTYRAMINE [Concomitant]
     Route: 048
  10. TYLENOL-500 [Concomitant]
     Dosage: TWO TABLETS AS NEEDED AT BEDTIME
     Route: 048
  11. CRESTOR [Suspect]
     Route: 048
  12. TOPROL-XL [Suspect]
     Dosage: TOTAL DAILY DOSE 100 MGS
     Route: 048
  13. TOPROL-XL [Suspect]
     Route: 048
  14. NITROGLYCERIN [Concomitant]
     Dosage: AS NEEDED
     Route: 060
  15. NIASPAN [Concomitant]
     Route: 048
  16. IMDUR [Concomitant]
     Route: 048
  17. ASPIRIN [Concomitant]
     Route: 048
  18. ACIPHEX [Concomitant]
     Route: 048
  19. PLAVIX [Concomitant]
     Route: 048

REACTIONS (5)
  - STENT PLACEMENT [None]
  - MYOCARDIAL INFARCTION [None]
  - ANGINA PECTORIS [None]
  - BLOOD TRIGLYCERIDES [None]
  - DYSPEPSIA [None]
